APPROVED DRUG PRODUCT: ROZLYTREK
Active Ingredient: ENTRECTINIB
Strength: 50MG/PACKET
Dosage Form/Route: PELLETS;ORAL
Application: N218550 | Product #001
Applicant: GENENTECH INC
Approved: Oct 20, 2023 | RLD: Yes | RS: Yes | Type: RX

EXCLUSIVITY:
Code: NP | Date: Oct 20, 2026
Code: ODE* | Date: Aug 15, 2026
Code: ODE* | Date: Aug 15, 2026
Code: ODE-448 | Date: Oct 20, 2030